FAERS Safety Report 8044266-8 (Version None)
Quarter: 2011Q4

REPORT INFORMATION
  Report Type: 
  Country: None (occurrence: None)
  Receive Date: 20111202
  Receipt Date: 20101014
  Transmission Date: 20120403
  Serious: Yes (Other)
  Sender: FDA-Public Use
  Company Number: WAES 0908USA04125

PATIENT
  Age: 55 Year
  Sex: Female

DRUGS (1)
  1. FOSAMAX [Suspect]
     Indication: OSTEOPOROSIS
     Dosage: 70 MG/WKY/PO
     Route: 048
     Dates: start: 20010101, end: 20080130

REACTIONS (21)
  - BRUXISM [None]
  - CARDIAC MURMUR [None]
  - STOMATITIS [None]
  - SINUS DISORDER [None]
  - ORAL INFECTION [None]
  - GINGIVAL DISORDER [None]
  - TOOTH FRACTURE [None]
  - DENTAL CARIES [None]
  - EAR PAIN [None]
  - FATIGUE [None]
  - FUNGAL INFECTION [None]
  - RESORPTION BONE INCREASED [None]
  - DEVICE FAILURE [None]
  - IMPAIRED HEALING [None]
  - OSTEONECROSIS OF JAW [None]
  - GINGIVAL INFECTION [None]
  - MOUTH ULCERATION [None]
  - IMPLANT SITE INFLAMMATION [None]
  - GINGIVAL BLEEDING [None]
  - DEVICE BREAKAGE [None]
  - MAJOR DEPRESSION [None]
